FAERS Safety Report 5051736-3 (Version None)
Quarter: 2006Q3

REPORT INFORMATION
  Report Type: 
  Country: None (occurrence: None)
  Receive Date: 20060712
  Receipt Date: 20060712
  Transmission Date: 20061208
  Serious: Yes (Hospitalization)
  Sender: FDA-Public Use
  Company Number: None

PATIENT
  Age: 41 Year
  Sex: Male
  Weight: 97.977 kg

DRUGS (1)
  1. LEXAPRO [Suspect]
     Indication: GENERALISED ANXIETY DISORDER
     Dosage: 10 MG Q DAY ORAL
     Route: 048
     Dates: start: 20060611, end: 20060614

REACTIONS (4)
  - ANOREXIA [None]
  - DRY MOUTH [None]
  - DYSPHAGIA [None]
  - INSOMNIA [None]
